FAERS Safety Report 15726023 (Version 1)
Quarter: 2018Q4

REPORT INFORMATION
  Report Type: Spontaneous
  Country: US (occurrence: US)
  Receive Date: 20181216
  Receipt Date: 20181216
  Transmission Date: 20190205
  Serious: No
  Sender: FDA-Public Use
  Company Number: US-SUPERNUS PHARMACEUTICALS, INC.-2018SUP00213

PATIENT
  Sex: Female
  Weight: 56.69 kg

DRUGS (4)
  1. TROKENDI XR [Suspect]
     Active Substance: TOPIRAMATE
     Indication: FRONTAL LOBE EPILEPSY
     Dosage: 100 MG, 1X/DAY AT NIGHT
     Route: 048
     Dates: start: 2018, end: 2018
  2. TROKENDI XR [Suspect]
     Active Substance: TOPIRAMATE
     Indication: MIGRAINE
     Dosage: 150 MG, 1X/DAY AT NIGHT
     Route: 048
     Dates: start: 2018
  3. TROKENDI XR [Suspect]
     Active Substance: TOPIRAMATE
     Indication: TEMPORAL LOBE EPILEPSY
     Dosage: 100 MG, 1X/DAY AT NIGHT
     Route: 048
     Dates: start: 201711, end: 201803
  4. LEVOXYL [Concomitant]
     Active Substance: LEVOTHYROXINE SODIUM
     Dosage: .112 MG, 1X/DAY

REACTIONS (3)
  - Emotional disorder [Unknown]
  - Alopecia [Not Recovered/Not Resolved]
  - Sleep deficit [Unknown]

NARRATIVE: CASE EVENT DATE: 2018
